FAERS Safety Report 24317849 (Version 2)
Quarter: 2024Q4

REPORT INFORMATION
  Report Type: Spontaneous
  Country: CA (occurrence: CA)
  Receive Date: 20240913
  Receipt Date: 20241004
  Transmission Date: 20250115
  Serious: Yes (Other)
  Sender: AMERICAN REGENT
  Company Number: CA-AMERICAN REGENT INC-2024003480

PATIENT
  Age: 18 Year
  Sex: Female

DRUGS (3)
  1. VENOFER [Suspect]
     Active Substance: IRON SUCROSE
     Indication: Blood iron decreased
     Dosage: 20.0 MILLIGRAM/ MILLILITER (100MG/5ML)
     Dates: start: 20240313, end: 20240313
  2. VENOFER [Suspect]
     Active Substance: IRON SUCROSE
     Dosage: 20.0 MILLIGRAM/ MILLILITER (100MG/5ML) AT 135 ML/HR
     Dates: start: 20240323, end: 20240323
  3. BENADRYL [Concomitant]
     Active Substance: DIPHENHYDRAMINE HYDROCHLORIDE
     Indication: Premedication
     Dosage: 25 MILLIGRAM, SINGLE
     Route: 065
     Dates: start: 20240323, end: 20240323

REACTIONS (3)
  - Paraesthesia [Recovered/Resolved]
  - Nausea [Recovered/Resolved]
  - Vomiting [Recovered/Resolved]

NARRATIVE: CASE EVENT DATE: 20240323
